FAERS Safety Report 12738170 (Version 1)
Quarter: 2016Q3

REPORT INFORMATION
  Report Type: Spontaneous
  Country: US (occurrence: US)
  Receive Date: 20160912
  Receipt Date: 20160912
  Transmission Date: 20161109
  Serious: No
  Sender: FDA-Public Use
  Company Number: US-SA-2016SA123055

PATIENT
  Age: 75 Year
  Sex: Female

DRUGS (3)
  1. LANTUS [Concomitant]
     Active Substance: INSULIN GLARGINE
  2. SOLOSTAR [Suspect]
     Active Substance: DEVICE
     Indication: TYPE 2 DIABETES MELLITUS
     Dates: start: 201606
  3. TOUJEO [Suspect]
     Active Substance: INSULIN GLARGINE
     Indication: TYPE 2 DIABETES MELLITUS
     Dosage: DOSE:20 UNIT(S)
     Route: 065
     Dates: start: 201606

REACTIONS (12)
  - Peripheral swelling [Unknown]
  - Oedema peripheral [Unknown]
  - Device issue [Unknown]
  - Tremor [Unknown]
  - Joint swelling [Unknown]
  - Blood glucose increased [Unknown]
  - Vertigo [Unknown]
  - Product use issue [Unknown]
  - Gastric disorder [Unknown]
  - Memory impairment [Unknown]
  - Dizziness [Unknown]
  - Abdominal discomfort [Unknown]

NARRATIVE: CASE EVENT DATE: 201606
